FAERS Safety Report 9541787 (Version 3)
Quarter: 2014Q1

REPORT INFORMATION
  Report Type: Spontaneous
  Country: US (occurrence: US)
  Receive Date: 20130923
  Receipt Date: 20140122
  Transmission Date: 20141002
  Serious: Yes (Other)
  Sender: FDA-Public Use
  Company Number: US-JNJFOC-20130909844

PATIENT
  Age: 7 Year
  Sex: Male

DRUGS (1)
  1. RISPERDAL [Suspect]
     Indication: PRODUCT USED FOR UNKNOWN INDICATION
     Route: 048
     Dates: start: 2002, end: 2008

REACTIONS (6)
  - Gynaecomastia [Unknown]
  - Tardive dyskinesia [Unknown]
  - Injury [Unknown]
  - Off label use [Unknown]
  - Abnormal weight gain [Unknown]
  - Emotional disorder [Unknown]
